FAERS Safety Report 7516825-X (Version None)
Quarter: 2011Q2

REPORT INFORMATION
  Report Type: 
  Country: None (occurrence: None)
  Receive Date: 20110523
  Receipt Date: 20110513
  Transmission Date: 20111010
  Serious: Yes (Death, Hospitalization)
  Sender: FDA-Public Use
  Company Number: 2011SP001595

PATIENT
  Age: 28 Year
  Sex: Female

DRUGS (3)
  1. XANAX [Suspect]
  2. LATUDA [Suspect]
     Indication: BIPOLAR DISORDER
     Dosage: 40 MG; ORAL , 80 MG; ORAL
     Route: 048
     Dates: start: 20110301
  3. LATUDA [Suspect]
     Indication: BIPOLAR DISORDER
     Dosage: 40 MG; ORAL , 80 MG; ORAL
     Route: 048
     Dates: start: 20110101

REACTIONS (3)
  - MYOCARDIAL INFARCTION [None]
  - INTENTIONAL OVERDOSE [None]
  - SUICIDE ATTEMPT [None]
